APPROVED DRUG PRODUCT: BLEOMYCIN SULFATE
Active Ingredient: BLEOMYCIN SULFATE
Strength: EQ 15 UNITS BASE/VIAL
Dosage Form/Route: INJECTABLE;INJECTION
Application: A065031 | Product #001 | TE Code: AP
Applicant: HOSPIRA INC
Approved: Mar 10, 2000 | RLD: No | RS: No | Type: RX